FAERS Safety Report 11111941 (Version 1)
Quarter: 2015Q2

REPORT INFORMATION
  Report Type: Spontaneous
  Country: US (occurrence: None)
  Receive Date: 20150513
  Receipt Date: 20150513
  Transmission Date: 20150821
  Serious: Yes (Other)
  Sender: FDA-Public Use
  Company Number: None

PATIENT
  Age: 53 Year
  Sex: Female
  Weight: 94.35 kg

DRUGS (20)
  1. L-LYSINE [Concomitant]
     Active Substance: LYSINE
  2. OMAPRAZOLE [Concomitant]
  3. PREDNISONE. [Concomitant]
     Active Substance: PREDNISONE
  4. OXYMORPHONE ER [Suspect]
     Active Substance: OXYMORPHONE
     Indication: SPINAL DISORDER
     Route: 048
     Dates: start: 20150424
  5. OMAPRAZOLE [Concomitant]
  6. OPANA ER/OXYMORPHONE ER [Concomitant]
  7. 5-HTP [Concomitant]
     Active Substance: OXITRIPTAN
  8. VITAMIN B12 [Concomitant]
     Active Substance: CYANOCOBALAMIN
  9. FLAX OIL CAPSULES [Concomitant]
  10. OXYCONIN IR [Concomitant]
  11. QUEROETIN/NETTLE [Concomitant]
  12. COQ10 [Concomitant]
     Active Substance: UBIDECARENONE
  13. FOLIC ACID. [Concomitant]
     Active Substance: FOLIC ACID
  14. MULTIVITAMIN [Concomitant]
     Active Substance: VITAMINS
  15. METHOTREXATE [Concomitant]
     Active Substance: METHOTREXATE
  16. URIBEL [Concomitant]
     Active Substance: HYOSCYAMINE SULFATE\METHENAMINE\METHYLENE BLUE\PHENYL SALICYLATE\SODIUM PHOSPHATE, MONOBASIC, MONOHYDRATE
  17. D3 [Concomitant]
     Active Substance: 25-HYDROXYCHOLECALCIFEROL, 5-TRANS-
  18. MAGNESIUM MALATE [Concomitant]
  19. OXYMORPHONE ER [Suspect]
     Active Substance: OXYMORPHONE
     Indication: PAIN
     Route: 048
     Dates: start: 20150424
  20. OXYMORPHONE ER [Suspect]
     Active Substance: OXYMORPHONE
     Indication: RHEUMATOID ARTHRITIS
     Route: 048
     Dates: start: 20150424

REACTIONS (15)
  - Product substitution issue [None]
  - Feeling abnormal [None]
  - Drug effect incomplete [None]
  - Drug effect decreased [None]
  - Nausea [None]
  - Product formulation issue [None]
  - Chest discomfort [None]
  - Overdose [None]
  - Poor quality sleep [None]
  - Dyspnoea [None]
  - Fear [None]
  - Dizziness [None]
  - Euphoric mood [None]
  - Product quality issue [None]
  - Activities of daily living impaired [None]

NARRATIVE: CASE EVENT DATE: 20150424
